FAERS Safety Report 24134244 (Version 10)
Quarter: 2024Q4

REPORT INFORMATION
  Report Type: Report from Study
  Country: MX (occurrence: MX)
  Receive Date: 20240724
  Receipt Date: 20241006
  Transmission Date: 20250114
  Serious: Yes (Other)
  Sender: JOHNSON AND JOHNSON
  Company Number: MX-JNJFOC-20240742860

PATIENT
  Age: 24 Year
  Sex: Female

DRUGS (20)
  1. SPRAVATO [Suspect]
     Active Substance: ESKETAMINE
     Indication: Depression
     Dates: start: 20240710
  2. SPRAVATO [Suspect]
     Active Substance: ESKETAMINE
     Dates: start: 20240713
  3. SPRAVATO [Suspect]
     Active Substance: ESKETAMINE
     Dosage: THIRD APPLICATION
     Dates: start: 202407
  4. SPRAVATO [Suspect]
     Active Substance: ESKETAMINE
     Dosage: FORTH APPLICATION
     Dates: start: 202407
  5. SPRAVATO [Suspect]
     Active Substance: ESKETAMINE
     Dates: start: 20240727
  6. SPRAVATO [Suspect]
     Active Substance: ESKETAMINE
     Dates: start: 20240731
  7. SPRAVATO [Suspect]
     Active Substance: ESKETAMINE
     Dates: start: 20240803
  8. SPRAVATO [Suspect]
     Active Substance: ESKETAMINE
     Dates: start: 20240807
  9. SPRAVATO [Suspect]
     Active Substance: ESKETAMINE
     Dates: start: 20240810
  10. SPRAVATO [Suspect]
     Active Substance: ESKETAMINE
     Dates: start: 20240824
  11. SPRAVATO [Suspect]
     Active Substance: ESKETAMINE
     Dates: start: 2024
  12. SPRAVATO [Suspect]
     Active Substance: ESKETAMINE
     Dates: start: 20240907
  13. SPRAVATO [Suspect]
     Active Substance: ESKETAMINE
     Dates: start: 2024
  14. VENLAFAXINE [Concomitant]
     Active Substance: VENLAFAXINE HYDROCHLORIDE
     Indication: Product used for unknown indication
  15. VENLAFAXINE [Concomitant]
     Active Substance: VENLAFAXINE HYDROCHLORIDE
  16. MIRTAZAPINE [Concomitant]
     Active Substance: MIRTAZAPINE
     Indication: Product used for unknown indication
  17. MIRTAZAPINE [Concomitant]
     Active Substance: MIRTAZAPINE
     Route: 048
  18. CLONAZEPAM [Concomitant]
     Active Substance: CLONAZEPAM
     Indication: Product used for unknown indication
  19. CLONAZEPAM [Concomitant]
     Active Substance: CLONAZEPAM
  20. BACLOFEN [Concomitant]
     Active Substance: BACLOFEN
     Indication: Product used for unknown indication

REACTIONS (23)
  - Dystonia [Recovered/Resolved]
  - Suicidal ideation [Not Recovered/Not Resolved]
  - Blood pressure fluctuation [Unknown]
  - Pain in extremity [Unknown]
  - Skin hyperpigmentation [Unknown]
  - Asthenia [Unknown]
  - Dissociation [Recovered/Resolved]
  - Dizziness [Not Recovered/Not Resolved]
  - Depression [Recovering/Resolving]
  - Nasal discomfort [Unknown]
  - Somnolence [Unknown]
  - Hypotension [Unknown]
  - Taste disorder [Unknown]
  - Sedation [Recovered/Resolved]
  - Vision blurred [Recovered/Resolved]
  - Skin lesion [Unknown]
  - Dyspnoea [Unknown]
  - Morbid thoughts [Not Recovered/Not Resolved]
  - Dysgraphia [Not Recovered/Not Resolved]
  - Poor quality product administered [Unknown]
  - Gastrointestinal infection [Unknown]
  - Feeling guilty [Unknown]
  - Frustration tolerance decreased [Unknown]

NARRATIVE: CASE EVENT DATE: 20240101
